FAERS Safety Report 8541558-0 (Version None)
Quarter: 2012Q3

REPORT INFORMATION
  Report Type: 
  Country: None (occurrence: None)
  Receive Date: 20120726
  Receipt Date: 20120518
  Transmission Date: 20120928
  Serious: No
  Sender: FDA-Public Use
  Company Number: US-MUTUAL PHARMACEUTICAL COMPANY, INC.-CLCY20120087

PATIENT
  Sex: Male
  Weight: 77.18 kg

DRUGS (4)
  1. ALLOPURINOL [Concomitant]
     Indication: GOUT
     Route: 048
     Dates: start: 20120416
  2. COLCRYS [Suspect]
     Indication: GOUT
     Route: 048
     Dates: start: 20120409, end: 20120401
  3. COLCRYS [Suspect]
     Route: 048
     Dates: start: 20120516
  4. VITAMIN D [Concomitant]
     Indication: VITAMIN SUPPLEMENTATION
     Route: 048

REACTIONS (1)
  - MYALGIA [None]
